FAERS Safety Report 4633816-7 (Version None)
Quarter: 2005Q2

REPORT INFORMATION
  Report Type: 
  Country: None (occurrence: None)
  Receive Date: 20050412
  Receipt Date: 20050330
  Transmission Date: 20051028
  Serious: Yes (Hospitalization)
  Sender: FDA-Public Use
  Company Number: 2005AP000294

PATIENT
  Age: 24 Year
  Sex: Female

DRUGS (4)
  1. CARBAMAZEPINE [Suspect]
     Indication: TEMPORAL LOBE EPILEPSY
     Dosage: 400 MG; TID; UNKNOWN
     Route: 065
  2. ALPRAZOLAM [Concomitant]
  3. SERTRALINE [Concomitant]
  4. PROPRANOLOL [Concomitant]

REACTIONS (2)
  - DRUG INTERACTION [None]
  - FALSE POSITIVE LABORATORY RESULT [None]
